FAERS Safety Report 12771740 (Version 1)
Quarter: 2016Q3

REPORT INFORMATION
  Report Type: Spontaneous
  Country: US (occurrence: US)
  Receive Date: 20160922
  Receipt Date: 20160922
  Transmission Date: 20161109
  Serious: No
  Sender: FDA-Public Use
  Company Number: US-PFIZER INC-2016436731

PATIENT
  Age: 69 Year
  Sex: Male

DRUGS (1)
  1. LOMOTIL [Suspect]
     Active Substance: ATROPINE SULFATE\DIPHENOXYLATE HYDROCHLORIDE
     Indication: DIARRHOEA
     Dosage: 4 DF, 1X/DAY (ATROPINE SULFATE 2.5 MG/ DIPHENOXYLATE HCL 0.25 MG, ONCE IN THE MORNING)

REACTIONS (3)
  - Drug ineffective [Unknown]
  - Product use issue [Unknown]
  - Abnormal faeces [Unknown]
